FAERS Safety Report 7587570-X (Version None)
Quarter: 2011Q3

REPORT INFORMATION
  Report Type: 
  Country: None (occurrence: None)
  Receive Date: 20110704
  Receipt Date: 20110621
  Transmission Date: 20111222
  Serious: Yes (Other)
  Sender: FDA-Public Use
  Company Number: PHHY2011DE55179

PATIENT
  Age: 73 Year
  Sex: Female
  Weight: 62 kg

DRUGS (3)
  1. ZOLEDRONIC ACID [Suspect]
     Indication: OSTEOPOROSIS
     Dosage: 5 MG, ONCE YEARLY
     Route: 042
     Dates: start: 20100602
  2. ZOLEDRONIC ACID [Suspect]
     Dosage: 5 MG, ONCE YEARLY
     Route: 042
     Dates: start: 20110608
  3. DEKRISTOL [Concomitant]
     Indication: OSTEOPOROSIS
     Dosage: 2 CAPSULES/ MONTH

REACTIONS (1)
  - ANKLE FRACTURE [None]
